FAERS Safety Report 19652964 (Version 2)
Quarter: 2021Q3

REPORT INFORMATION
  Report Type: Spontaneous
  Country: JP (occurrence: JP)
  Receive Date: 20210803
  Receipt Date: 20210922
  Transmission Date: 20211014
  Serious: Yes (Life-Threatening)
  Sender: FDA-Public Use
  Company Number: JP-PFIZER INC-202100918986

PATIENT
  Age: 49 Year
  Sex: Male
  Weight: 58 kg

DRUGS (4)
  1. VFEND [Suspect]
     Active Substance: VORICONAZOLE
     Indication: CHRONIC GRAFT VERSUS HOST DISEASE
  2. BAKTAR [Concomitant]
     Active Substance: SULFAMETHOXAZOLE\TRIMETHOPRIM
     Dosage: 1 DF, 3X/WEEK (MON, WED AND FRI)
     Route: 065
  3. VFEND [Suspect]
     Active Substance: VORICONAZOLE
     Indication: FUNGAL INFECTION
     Dosage: 300 MG, DAILY
     Route: 048
     Dates: start: 20160211, end: 20210310
  4. ACICLOVIR [Concomitant]
     Active Substance: ACYCLOVIR
     Dosage: 200 MG, DAILY
     Route: 065

REACTIONS (2)
  - Neoplasm skin [Recovering/Resolving]
  - Actinic keratosis [Recovering/Resolving]

NARRATIVE: CASE EVENT DATE: 20210203
